FAERS Safety Report 12501254 (Version 2)
Quarter: 2016Q3

REPORT INFORMATION
  Report Type: Spontaneous
  Country: CN (occurrence: CN)
  Receive Date: 20160627
  Receipt Date: 20160704
  Transmission Date: 20161109
  Serious: No
  Sender: FDA-Public Use
  Company Number: CN-009507513-1504CHN012332

PATIENT
  Age: 63 Year
  Sex: Male
  Weight: 53.5 kg

DRUGS (14)
  1. FUROSEMIDE. [Concomitant]
     Active Substance: FUROSEMIDE
     Dosage: 20 MG, QD
     Route: 042
     Dates: start: 20150312, end: 20150313
  2. CISPLATIN. [Concomitant]
     Active Substance: CISPLATIN
     Dosage: 50 MG, CYCLICAL, 50MG D2, TREATMENTREGIMEN: PP, TREATMENT CYCLE: 1/UNK
     Dates: start: 20150313, end: 20150313
  3. DEXAMETHASONE. [Concomitant]
     Active Substance: DEXAMETHASONE
     Indication: PROPHYLAXIS OF NAUSEA AND VOMITING
     Dosage: 75 MG, ONCE
     Route: 048
     Dates: start: 20150311, end: 20150311
  4. TROPISETRON HYDROCHLORIDE [Concomitant]
     Active Substance: TROPISETRON HYDROCHLORIDE
     Indication: PROPHYLAXIS OF NAUSEA AND VOMITING
     Dosage: 5 MG, QD
     Route: 041
     Dates: start: 20150312, end: 20150313
  5. FUROSEMIDE. [Concomitant]
     Active Substance: FUROSEMIDE
     Indication: POLYURIA
     Dosage: 20 MG, QD
     Route: 042
     Dates: start: 20150310, end: 20150310
  6. CISPLATIN. [Concomitant]
     Active Substance: CISPLATIN
     Indication: CHEMOTHERAPY
     Dosage: 60MG D1, TREATMENT REGIMEN: PP, TRATMENT CYCLE 1/UNK
     Route: 041
     Dates: start: 20150312, end: 20150312
  7. DEXTROSE (+) ELECTROLYTES (UNSPECIFIED) [Concomitant]
     Indication: PROPHYLAXIS
     Dosage: 1000 ML, QD
     Route: 041
     Dates: start: 20150312, end: 20150313
  8. MANNITOL. [Concomitant]
     Active Substance: MANNITOL
     Indication: POLYURIA
     Dosage: 250 ML/CC, QD
     Route: 041
     Dates: start: 20150312, end: 20150313
  9. CYANOCOBALAMIN. [Concomitant]
     Active Substance: CYANOCOBALAMIN
     Indication: VITAMIN SUPPLEMENTATION
     Dosage: 1 MG, ONCE
     Route: 042
     Dates: start: 20150311, end: 20150311
  10. EMEND [Suspect]
     Active Substance: APREPITANT
     Indication: PROPHYLAXIS OF NAUSEA AND VOMITING
     Dosage: 125 MG ON DAY 1
     Route: 048
     Dates: start: 20150312
  11. PEMETREXED DISODIUM [Concomitant]
     Active Substance: PEMETREXED DISODIUM
     Indication: CHEMOTHERAPY
     Dosage: 800 MG, TREATMENT REGIMEN: PP, TREATMENT CYCLE: 1/UNK
     Route: 041
     Dates: start: 20150312, end: 20150312
  12. EMEND [Suspect]
     Active Substance: APREPITANT
     Dosage: 80 MG ON DAY 3
     Route: 048
     Dates: start: 20150314
  13. DEXAMETHASONE SODIUM PHOSPHATE. [Concomitant]
     Active Substance: DEXAMETHASONE SODIUM PHOSPHATE
     Indication: PROPHYLAXIS OF NAUSEA AND VOMITING
     Dosage: 10 MG, QD
     Route: 042
     Dates: start: 20150312, end: 20150313
  14. EMEND [Suspect]
     Active Substance: APREPITANT
     Dosage: 80 MG ON DAY 2
     Route: 048
     Dates: start: 20150313

REACTIONS (3)
  - Functional gastrointestinal disorder [Unknown]
  - Insomnia [Not Recovered/Not Resolved]
  - Constipation [Recovered/Resolved]

NARRATIVE: CASE EVENT DATE: 201503
